FAERS Safety Report 20695438 (Version 1)
Quarter: 2022Q2

REPORT INFORMATION
  Report Type: Spontaneous
  Country: PL (occurrence: PL)
  Receive Date: 20220411
  Receipt Date: 20220411
  Transmission Date: 20220720
  Serious: Yes (Death, Life-Threatening, Other)
  Sender: FDA-Public Use
  Company Number: PL-WZFPOLFA-236250

PATIENT
  Age: 10 Year
  Sex: Female
  Weight: 45 kg

DRUGS (5)
  1. EPINEPHRINE [Suspect]
     Active Substance: EPINEPHRINE
     Indication: Product used for unknown indication
     Dosage: UNK
  2. CEFUROXIME SODIUM [Concomitant]
     Active Substance: CEFUROXIME SODIUM
     Indication: Prophylaxis
     Dosage: UNK
     Route: 042
     Dates: start: 20180530, end: 20180530
  3. SODIUM CHLORIDE [Concomitant]
     Active Substance: SODIUM CHLORIDE
     Dosage: 5 MILLILITER
     Route: 042
     Dates: start: 20180530, end: 20180530
  4. WATER FOR INJECTION [Concomitant]
     Active Substance: WATER
     Dosage: 5 MILLILITER
     Route: 042
     Dates: start: 20180530, end: 20180530
  5. POTASSIUM CHLORIDE [Concomitant]
     Active Substance: POTASSIUM CHLORIDE
     Dosage: UNK
     Route: 042

REACTIONS (1)
  - Drug ineffective [Fatal]
